FAERS Safety Report 12761291 (Version 1)
Quarter: 2016Q3

REPORT INFORMATION
  Report Type: Spontaneous
  Country: US (occurrence: US)
  Receive Date: 20160920
  Receipt Date: 20160920
  Transmission Date: 20161109
  Serious: No
  Sender: FDA-Public Use
  Company Number: US-TEVA-610525USA

PATIENT
  Sex: Female

DRUGS (1)
  1. JUNEL FE 1/20 [Suspect]
     Active Substance: ETHINYL ESTRADIOL\NORETHINDRONE ACETATE
     Dosage: 1/20
     Dates: start: 201509

REACTIONS (4)
  - Product packaging quantity issue [Unknown]
  - Menorrhagia [Unknown]
  - Acne [Unknown]
  - Product quality issue [Unknown]
